FAERS Safety Report 8127332 (Version 2)
Quarter: 2012Q4

REPORT INFORMATION
  Report Type: 
  Country: US (occurrence: US)
  Receive Date: 20110908
  Receipt Date: 20120830
  Transmission Date: 20130627
  Serious: Yes (Other)
  Sender: FDA-Public Use
  Company Number: US-US-EMD SERONO, INC.-7080254

PATIENT
  Age: 39 Year
  Sex: Female
  Weight: 68 kg

DRUGS (3)
  1. REBIF [Suspect]
     Indication: MULTIPLE SCLEROSIS
     Route: 058
     Dates: start: 20110825
  2. GABAPENTIN [Concomitant]
     Indication: MULTIPLE SCLEROSIS
  3. IBUPROFEN [Concomitant]
     Indication: PREMEDICATION

REACTIONS (6)
  - Blood pressure decreased [Recovering/Resolving]
  - Presyncope [Recovering/Resolving]
  - Dizziness [Recovering/Resolving]
  - Feeling hot [Recovering/Resolving]
  - Influenza like illness [Unknown]
  - Injection site bruising [Unknown]
